FAERS Safety Report 9944126 (Version 1)
Quarter: 2014Q1

REPORT INFORMATION
  Report Type: Report from Study
  Country: US (occurrence: US)
  Receive Date: 20140303
  Receipt Date: 20140303
  Transmission Date: 20141002
  Serious: No
  Sender: FDA-Public Use
  Company Number: US-ABBVIE-13P-163-1051048-00

PATIENT
  Age: 83 Year
  Sex: Female

DRUGS (12)
  1. HUMIRA [Suspect]
     Indication: PSORIASIS
     Dosage: LOADING DOSE
     Dates: start: 20130206, end: 20130206
  2. HUMIRA [Suspect]
  3. ATENOLOL [Concomitant]
     Indication: BLOOD PRESSURE
  4. COZAAR [Concomitant]
     Indication: BLOOD PRESSURE
  5. DETROL LA [Concomitant]
     Indication: BLADDER DISORDER
  6. SERTRALINE [Concomitant]
     Indication: PRODUCT USED FOR UNKNOWN INDICATION
  7. CLOBETASOL [Concomitant]
     Indication: PSORIASIS
     Dosage: APPLY TO SCALP DAILY AND TWICE A DAY TO HANDS AND FEET
  8. FLONASE [Concomitant]
     Indication: PSORIASIS
     Dosage: IN EACH NOSTRIL DAILY
  9. VOLTAREN [Concomitant]
     Indication: BURSITIS
     Route: 061
  10. VOLTAREN [Concomitant]
     Indication: ARTHRALGIA
  11. EYE DROPS [Concomitant]
     Indication: DRY EYE
  12. DYFLOGEST [Concomitant]
     Indication: IRRITABLE BOWEL SYNDROME

REACTIONS (2)
  - Insomnia [Not Recovered/Not Resolved]
  - Paraesthesia [Not Recovered/Not Resolved]
